FAERS Safety Report 10441658 (Version 2)
Quarter: 2015Q1

REPORT INFORMATION
  Report Type: Spontaneous
  Country: FR (occurrence: FR)
  Receive Date: 20140909
  Receipt Date: 20150209
  Transmission Date: 20150720
  Serious: Yes (Hospitalization)
  Sender: FDA-Public Use
  Company Number: FR-TEVA-505932ISR

PATIENT
  Age: 69 Year
  Sex: Male

DRUGS (9)
  1. SOLU-MEDROL [Concomitant]
     Active Substance: METHYLPREDNISOLONE SODIUM SUCCINATE
     Indication: BLADDER NEOPLASM
  2. ZYLORIC [Concomitant]
     Active Substance: ALLOPURINOL
     Dosage: LONG-STANDING TREATMENT
  3. NOVONORM [Concomitant]
     Active Substance: REPAGLINIDE
     Dosage: LONG-STANDING TREATMENT
  4. GLUCOPHAGE [Concomitant]
     Active Substance: METFORMIN HYDROCHLORIDE
     Dosage: LONG-STANDING TREATMENT
  5. METHOTREXATE [Suspect]
     Active Substance: METHOTREXATE
     Indication: BLADDER NEOPLASM
     Route: 042
     Dates: start: 20140618, end: 20140730
  6. COAPROVEL [Concomitant]
     Active Substance: HYDROCHLOROTHIAZIDE\IRBESARTAN
     Dosage: LONG-STANDING TREATMENT
  7. VELBE [Suspect]
     Active Substance: VINBLASTINE SULFATE
     Indication: BLADDER NEOPLASM
     Route: 042
     Dates: start: 20140618, end: 20140730
  8. DOXORUBICIN HYDROCHLORIDE. [Suspect]
     Active Substance: DOXORUBICIN HYDROCHLORIDE
     Indication: BLADDER NEOPLASM
     Route: 042
     Dates: start: 20140618, end: 20140730
  9. CISPLATINE TEVA [Suspect]
     Active Substance: CISPLATIN
     Indication: BLADDER NEOPLASM
     Route: 042

REACTIONS (2)
  - Vomiting [Recovered/Resolved]
  - Hypokalaemia [Recovered/Resolved]

NARRATIVE: CASE EVENT DATE: 201408
